FAERS Safety Report 21070169 (Version 6)
Quarter: 2022Q3

REPORT INFORMATION
  Report Type: Report from Study
  Country: CA (occurrence: CA)
  Receive Date: 20220712
  Receipt Date: 20220815
  Transmission Date: 20221027
  Serious: Yes (Hospitalization, Other)
  Sender: FDA-Public Use
  Company Number: CA-VER-202200369

PATIENT
  Age: 75 Year
  Sex: Male

DRUGS (3)
  1. TRELSTAR [Suspect]
     Active Substance: TRIPTORELIN PAMOATE
     Indication: Prostate cancer
     Dosage: DRUG START DATE:29-JUL-2022
     Route: 030
     Dates: end: 20220629
  2. TRELSTAR [Suspect]
     Active Substance: TRIPTORELIN PAMOATE
     Indication: Prostate cancer
     Dosage: 2)??11.25 MILLIGRAM, ONCE / 3 MONTHS, STRENGTH:22.5 MG (11.25 MG,3 M)-29-JUNE-2022
     Route: 030
     Dates: start: 20210611, end: 20210611
  3. CEPHALEXIN [Concomitant]
     Active Substance: CEPHALEXIN
     Route: 065

REACTIONS (4)
  - Diarrhoea [Unknown]
  - Injection site pain [Unknown]
  - Staphylococcal infection [Unknown]
  - Bone operation [Unknown]

NARRATIVE: CASE EVENT DATE: 20211121
